FAERS Safety Report 19656907 (Version 1)
Quarter: 2021Q3

REPORT INFORMATION
  Report Type: Spontaneous
  Country: US (occurrence: US)
  Receive Date: 20210804
  Receipt Date: 20210804
  Transmission Date: 20211014
  Serious: Yes (Other)
  Sender: FDA-Public Use
  Company Number: None

PATIENT
  Sex: Female

DRUGS (1)
  1. METHOTREXATE TAB 2.5MG [Suspect]
     Active Substance: METHOTREXATE
     Dates: start: 20210317, end: 20210729

REACTIONS (2)
  - Swelling face [None]
  - Mass [None]

NARRATIVE: CASE EVENT DATE: 20210729
